FAERS Safety Report 9208845 (Version 1)
Quarter: 2013Q2

REPORT INFORMATION
  Report Type: Spontaneous
  Country: US (occurrence: US)
  Receive Date: 20130404
  Receipt Date: 20130404
  Transmission Date: 20140414
  Serious: No
  Sender: FDA-Public Use
  Company Number: US-009507513-1304USA001271

PATIENT
  Age: 32 Year
  Sex: Female
  Weight: 77.98 kg

DRUGS (9)
  1. PEGINTRON [Suspect]
     Dosage: REDIPEN, 120 MCG (0.5 ML) EVERY 7 DAYS FOR 24 WEEKS
     Route: 058
  2. REBETOL [Suspect]
     Route: 048
  3. MOTRIN [Concomitant]
     Route: 048
  4. LITHIUM CARBONATE [Concomitant]
     Route: 048
  5. METHADONE HYDROCHLORIDE [Concomitant]
     Route: 048
  6. DILAUDID [Concomitant]
     Route: 048
  7. CLINDAMYCIN [Concomitant]
     Route: 048
  8. LAMICTAL [Concomitant]
     Route: 048
  9. TYLENOL [Concomitant]
     Dosage: 8 HOURS
     Route: 048

REACTIONS (7)
  - Fatigue [Unknown]
  - Insomnia [Unknown]
  - Injection site rash [Unknown]
  - Oral pain [Unknown]
  - Dysgeusia [Unknown]
  - Influenza like illness [Unknown]
  - Tongue coated [Unknown]
